FAERS Safety Report 9937287 (Version 4)
Quarter: 2014Q3

REPORT INFORMATION
  Report Type: Spontaneous
  Country: CH (occurrence: CH)
  Receive Date: 20140302
  Receipt Date: 20140702
  Transmission Date: 20150326
  Serious: Yes (Other)
  Sender: FDA-Public Use
  Company Number: PHHY2014CH024635

PATIENT
  Age: 52 Year
  Sex: Male

DRUGS (6)
  1. SIRDALUD [Concomitant]
     Active Substance: TIZANIDINE
     Indication: MUSCLE SPASTICITY
     Dosage: 2 MG, TID
     Route: 048
  2. GILENYA [Suspect]
     Active Substance: FINGOLIMOD HYDROCHLORIDE
     Dosage: 1 DF, EVERY SECOND DAY
     Route: 048
     Dates: start: 20140520
  3. NEXIUM HP [Concomitant]
     Active Substance: AMOXICILLIN\CLARITHROMYCIN\ESOMEPRAZOLE
     Dosage: 40 MG, QD
     Route: 048
  4. GILENYA [Suspect]
     Active Substance: FINGOLIMOD HYDROCHLORIDE
     Indication: MULTIPLE SCLEROSIS RELAPSE
     Route: 048
     Dates: start: 201111
  5. GILENYA [Suspect]
     Active Substance: FINGOLIMOD HYDROCHLORIDE
     Dosage: 1 DF, EVERY THREE DAYS
     Route: 048
     Dates: end: 20140227
  6. MODASOMIL [Concomitant]
     Indication: FATIGUE
     Dosage: 100MG, BID
     Route: 048

REACTIONS (9)
  - Prostatitis [Recovering/Resolving]
  - Gait disturbance [Recovering/Resolving]
  - Prescribed underdose [Unknown]
  - Visual impairment [Recovering/Resolving]
  - Lymphopenia [Recovering/Resolving]
  - Paraparesis [Recovering/Resolving]
  - Retinal haemorrhage [Recovering/Resolving]
  - Multiple sclerosis relapse [Recovering/Resolving]
  - Intraocular pressure test abnormal [Recovering/Resolving]

NARRATIVE: CASE EVENT DATE: 201202
